FAERS Safety Report 4276219-X (Version None)
Quarter: 2004Q1

REPORT INFORMATION
  Report Type: 
  Country: None (occurrence: None)
  Receive Date: 20040121
  Receipt Date: 20030612
  Transmission Date: 20041129
  Serious: No
  Sender: FDA-Public Use
  Company Number: US-GLAXOSMITHKLINE-A0412301A

PATIENT
  Age: 51 Year
  Sex: Male

DRUGS (3)
  1. ZIAGEN [Suspect]
     Indication: HIV INFECTION
     Route: 048
     Dates: start: 20030611, end: 20030612
  2. VIRAMUNE [Concomitant]
     Indication: HIV INFECTION
  3. VIREAD [Concomitant]
     Indication: HIV INFECTION

REACTIONS (1)
  - RASH [None]
